FAERS Safety Report 8459457 (Version 2)
Quarter: 2013Q1

REPORT INFORMATION
  Report Type: Spontaneous
  Country: US (occurrence: US)
  Receive Date: 20120314
  Receipt Date: 20130204
  Transmission Date: 20140127
  Serious: Yes (Death)
  Sender: FDA-Public Use
  Company Number: US-ASTRAZENECA-2011SE61101

PATIENT
  Age: 44 Year
  Sex: Male

DRUGS (1)
  1. TOPROL XL [Suspect]
     Route: 048

REACTIONS (3)
  - Death [Fatal]
  - Cardiac disorder [Unknown]
  - Activities of daily living impaired [Unknown]
